FAERS Safety Report 18449709 (Version 1)
Quarter: 2020Q4

REPORT INFORMATION
  Report Type: Spontaneous
  Country: US (occurrence: US)
  Receive Date: 20201031
  Receipt Date: 20201031
  Transmission Date: 20210114
  Serious: Yes (Other)
  Sender: FDA-Public Use
  Company Number: US-NAPPMUNDI-USA-2020-0152418

PATIENT
  Sex: Male

DRUGS (18)
  1. OXYCODONE HCL CR TABLETS (SIMILAR TO NDA 22-272) [Suspect]
     Active Substance: OXYCODONE HYDROCHLORIDE
     Indication: ARTHRALGIA
  2. MORPHINE SULFATE EXTENDED-RELEASE TABLETS (RHODES 74-769, 74-862) [Suspect]
     Active Substance: MORPHINE SULFATE
     Indication: ARTHRALGIA
  3. OXYCONTIN [Suspect]
     Active Substance: OXYCODONE HYDROCHLORIDE
     Indication: BACK PAIN
     Dosage: UNKNOWN
     Route: 048
  4. HYDROCODONE BITARTRATE AND ACETAMINOPHEN [Suspect]
     Active Substance: ACETAMINOPHEN\HYDROCODONE BITARTRATE
     Indication: BACK PAIN
     Dosage: UNKNOWN
     Route: 048
  5. OXYCODONE/ ACETAMINOPHEN TABLETS [Suspect]
     Active Substance: ACETAMINOPHEN\OXYCODONE HYDROCHLORIDE
     Indication: BACK PAIN
     Dosage: UNKNOWN
     Route: 048
  6. MORPHINE SULFATE EXTENDED-RELEASE TABLETS (RHODES 74-769, 74-862) [Suspect]
     Active Substance: MORPHINE SULFATE
     Indication: BACK PAIN
     Dosage: UNKNOWN
     Route: 048
  7. TRAMADOL                           /00599202/ [Suspect]
     Active Substance: TRAMADOL
     Indication: ARTHRALGIA
  8. OXYCONTIN [Suspect]
     Active Substance: OXYCODONE HYDROCHLORIDE
     Indication: ARTHRALGIA
  9. OXYCODONE HYDROCHLORIDE. [Suspect]
     Active Substance: OXYCODONE HYDROCHLORIDE
     Indication: BACK PAIN
     Dosage: UNKNOWN
     Route: 048
  10. OXYCODONE/ ACETAMINOPHEN TABLETS [Suspect]
     Active Substance: ACETAMINOPHEN\OXYCODONE HYDROCHLORIDE
     Indication: ARTHRALGIA
  11. DILAUDID [Suspect]
     Active Substance: HYDROMORPHONE HYDROCHLORIDE
     Indication: BACK PAIN
     Dosage: UNKNOWN
     Route: 048
  12. DILAUDID [Suspect]
     Active Substance: HYDROMORPHONE HYDROCHLORIDE
     Indication: ARTHRALGIA
  13. OXYCODONE HYDROCHLORIDE. [Suspect]
     Active Substance: OXYCODONE HYDROCHLORIDE
     Indication: ARTHRALGIA
  14. OXYCODONE HCL CR TABLETS (SIMILAR TO NDA 22-272) [Suspect]
     Active Substance: OXYCODONE HYDROCHLORIDE
     Indication: BACK PAIN
     Dosage: UNKNOWN
     Route: 048
  15. MS CONTIN [Suspect]
     Active Substance: MORPHINE SULFATE
     Indication: BACK PAIN
     Dosage: UNKNOWN
     Route: 048
  16. TRAMADOL                           /00599202/ [Suspect]
     Active Substance: TRAMADOL
     Indication: BACK PAIN
     Dosage: UNKNOWN
     Route: 048
  17. MS CONTIN [Suspect]
     Active Substance: MORPHINE SULFATE
     Indication: ARTHRALGIA
  18. HYDROCODONE BITARTRATE AND ACETAMINOPHEN [Suspect]
     Active Substance: ACETAMINOPHEN\HYDROCODONE BITARTRATE
     Indication: ARTHRALGIA

REACTIONS (2)
  - Overdose [Unknown]
  - Drug dependence [Unknown]
